FAERS Safety Report 7386911-6 (Version None)
Quarter: 2011Q1

REPORT INFORMATION
  Report Type: 
  Country: None (occurrence: None)
  Receive Date: 20110331
  Receipt Date: 20110217
  Transmission Date: 20110831
  Serious: Yes (Other)
  Sender: FDA-Public Use
  Company Number: US-BAYER-2011-005441

PATIENT
  Sex: Female
  Weight: 2.902 kg

DRUGS (37)
  1. BICITRA [Concomitant]
     Indication: RENAL FAILURE
     Dosage: 3 ML EVERY 12 HRS
     Dates: start: 20060101
  2. REGLAN [Concomitant]
     Indication: GASTROOESOPHAGEAL REFLUX DISEASE
     Dosage: 0.3 MG EVERY 12 HRS
     Dates: start: 20060101
  3. PLATELETS [Concomitant]
     Dosage: 55 ML
     Dates: start: 20060217
  4. OMNIPAQUE 140 [Concomitant]
     Dosage: 54CC
     Dates: start: 20050101
  5. TRASYLOL,TRASYLOL [Suspect]
     Indication: TRICUSPID VALVE INCOMPETENCE
     Dosage: 1 ML, UNK
     Route: 042
     Dates: start: 20060217, end: 20060217
  6. RED BLOOD CELLS [Concomitant]
     Dosage: 1 UNIT
     Dates: start: 20060623
  7. RED BLOOD CELLS [Concomitant]
  8. LEVOTHYROXINE SODIUM [Concomitant]
     Indication: HYPOTHYROIDISM
     Dosage: 0.25 MG, QD
     Dates: start: 20060101
  9. ZANTAC [Concomitant]
     Dosage: 7.5 MG EVERY 12 HRS
     Dates: start: 20060101
  10. CAPTOPRIL [Concomitant]
     Indication: HYPERTENSION
     Dosage: 1 MG EVERY 8 HRS
     Dates: start: 20060201
  11. EPINEPHRINE [Concomitant]
     Dosage: 0.02 MCG/KG/MIN TO 0.06 MCG/KG/MIN
     Route: 042
     Dates: start: 20060628
  12. RED BLOOD CELLS [Concomitant]
     Dosage: 1 UNIT
     Dates: start: 20060218
  13. ENALAPRIL MALEATE [Concomitant]
  14. AQUAMEPHYTON [Concomitant]
     Dosage: 1 MG, UNK
     Route: 030
     Dates: start: 20051202
  15. TRASYLOL,TRASYLOL [Suspect]
     Indication: SYSTEMIC-PULMONARY ARTERY SHUNT
     Dosage: 60 MG,LOADING DOSE
     Route: 042
     Dates: start: 20060628, end: 20060628
  16. ASPIRIN [Concomitant]
     Dosage: 20 MG, QD
     Dates: start: 20060201
  17. SODIUM CITRATE [Concomitant]
     Indication: RENAL FAILURE
     Dosage: 3 ML, UNK
     Dates: start: 20060101
  18. ISO [Concomitant]
     Dosage: 0.8 UNK, UNK
     Route: 042
     Dates: start: 20060217
  19. DOPAMINE [Concomitant]
     Dosage: 5 MCG/KG/MIN
     Route: 042
     Dates: start: 20051203
  20. METOCLOPRAMIDE [Concomitant]
     Indication: GASTROOESOPHAGEAL REFLUX DISEASE
     Dosage: 1 ML EVERY 12 HRS
     Dates: start: 20060101
  21. ASPIRIN [Concomitant]
     Dosage: 40 MG, QD
     Dates: start: 20060101
  22. RED BLOOD CELLS [Concomitant]
     Indication: TRICUSPID VALVE REPAIR
     Dosage: 1 UNIT
     Dates: start: 20060217
  23. SYNTHROID [Concomitant]
     Indication: HYPOTHYROIDISM
     Dosage: 0.25 MCG DAILY
     Dates: start: 20060101
  24. MILRINONE [Concomitant]
     Dosage: 0.375 MCG/KG
     Route: 042
     Dates: start: 20060217
  25. PROTAMINE SULFATE [Concomitant]
     Dosage: 36 MG, UNK
     Route: 042
     Dates: start: 20060217, end: 20060217
  26. PROTAMINE SULFATE [Concomitant]
     Dosage: 45 MG, UNK
     Route: 042
     Dates: start: 20060628, end: 20060628
  27. LASIX [Concomitant]
     Indication: CARDIAC FAILURE CONGESTIVE
     Dosage: 3 MG EVERY 12 HRS
     Dates: start: 20051201
  28. LANOXIN [Concomitant]
     Dosage: 15 MCG EVERY 12 HRS
     Dates: start: 20060201
  29. EPINEPHRINE [Concomitant]
     Dosage: 0.02 MCG/KG
     Route: 042
     Dates: start: 20060217, end: 20060217
  30. MILRINONE [Concomitant]
     Dosage: 0.375 MCG/KG TO 0.5 MCG/MIN
     Route: 042
     Dates: start: 20060628
  31. OMNIPAQUE 140 [Concomitant]
     Dosage: 30CC
     Dates: start: 20050101
  32. TRASYLOL,TRASYLOL [Suspect]
     Indication: UNIVENTRICULAR HEART
     Dosage: 15 ML/HR
     Route: 041
     Dates: start: 20060217, end: 20060217
  33. ZANTAC [Concomitant]
     Indication: GASTROOESOPHAGEAL REFLUX DISEASE
     Dosage: 1 ML EVERY 12 HRS
     Dates: start: 20060101
  34. TRASYLOL,TRASYLOL [Suspect]
     Indication: HEART VALVE OPERATION
  35. HEPARIN SODIUM [Concomitant]
     Dosage: 3000 UNITS
     Route: 042
     Dates: start: 20060628, end: 20060628
  36. PLASMA [Concomitant]
     Dosage: 35 ML
     Dates: start: 20060217
  37. PROSTIN VR PEDIATRIC [Concomitant]
     Dosage: 1 MCG/KG/MIN
     Route: 042
     Dates: start: 20051202

REACTIONS (9)
  - FEAR [None]
  - DEPRESSION [None]
  - RENAL FAILURE [None]
  - PAIN [None]
  - INJURY [None]
  - RENAL INJURY [None]
  - UNEVALUABLE EVENT [None]
  - MULTI-ORGAN FAILURE [None]
  - ANXIETY [None]
